FAERS Safety Report 17576096 (Version 2)
Quarter: 2020Q1

REPORT INFORMATION
  Report Type: Report from Study
  Country: US (occurrence: US)
  Receive Date: 20200324
  Receipt Date: 20200330
  Transmission Date: 20200409
  Serious: Yes (Hospitalization)
  Sender: FDA-Public Use
  Company Number: US-PFIZER INC-2020111042

PATIENT
  Age: 47 Year
  Sex: Female

DRUGS (2)
  1. TAMOXIFEN CITRATE. [Suspect]
     Active Substance: TAMOXIFEN CITRATE
     Indication: BREAST CANCER
     Dosage: 20 MG, UNK
     Route: 048
     Dates: start: 20180829
  2. PALBOCICLIB [Suspect]
     Active Substance: PALBOCICLIB
     Indication: BREAST CANCER
     Dosage: 125 MG, UNK
     Route: 048
     Dates: start: 20180829, end: 20200225

REACTIONS (2)
  - Dizziness [Recovered/Resolved]
  - Headache [Recovered/Resolved]

NARRATIVE: CASE EVENT DATE: 20200225
